FAERS Safety Report 5523253-5 (Version None)
Quarter: 2007Q4

REPORT INFORMATION
  Report Type: 
  Country: None (occurrence: None)
  Receive Date: 20071119
  Receipt Date: 20071119
  Transmission Date: 20080405
  Serious: Yes (Other)
  Sender: FDA-Public Use
  Company Number: None

PATIENT
  Age: 38 Year
  Sex: Female
  Weight: 68.0396 kg

DRUGS (1)
  1. CYMBALTA [Suspect]
     Indication: SLEEP DISORDER
     Dosage: 60 MG 1 TABLET PER DAY PO
     Route: 048

REACTIONS (11)
  - CHILLS [None]
  - DIZZINESS [None]
  - DRUG DOSE OMISSION [None]
  - DYSPNOEA [None]
  - HEADACHE [None]
  - NAUSEA [None]
  - NERVOUS SYSTEM DISORDER [None]
  - PAIN [None]
  - PARAESTHESIA [None]
  - VERTIGO [None]
  - WITHDRAWAL SYNDROME [None]
